FAERS Safety Report 23767760 (Version 1)
Quarter: 2024Q2

REPORT INFORMATION
  Report Type: Spontaneous
  Country: US (occurrence: None)
  Receive Date: 20240419
  Receipt Date: 20240419
  Transmission Date: 20240716
  Serious: No
  Sender: FDA-Public Use
  Company Number: None

PATIENT
  Age: 64 Year
  Sex: Female

DRUGS (1)
  1. AMBRISENTAN [Suspect]
     Active Substance: AMBRISENTAN
     Indication: Pulmonary arterial hypertension
     Dosage: FREQUENCY : DAILY;?
     Route: 048
     Dates: start: 20230407

REACTIONS (7)
  - Rash pruritic [None]
  - Rash [None]
  - Drug ineffective [None]
  - Rash vesicular [None]
  - Eczema [None]
  - Superinfection bacterial [None]
  - Dry skin [None]

NARRATIVE: CASE EVENT DATE: 20240407
